FAERS Safety Report 26004971 (Version 1)
Quarter: 2025Q4

REPORT INFORMATION
  Report Type: Report from Study
  Country: US (occurrence: US)
  Receive Date: 20251106
  Receipt Date: 20251106
  Transmission Date: 20260117
  Serious: Yes (Hospitalization)
  Sender: AMGEN
  Company Number: US-AMGEN-USASL2025218530

PATIENT
  Sex: Male

DRUGS (2)
  1. ENBREL [Suspect]
     Active Substance: ETANERCEPT
     Indication: Spinal instability
     Dosage: 50 MILLIGRAM, QWK
     Route: 065
  2. ENBREL [Suspect]
     Active Substance: ETANERCEPT
     Indication: Off label use

REACTIONS (2)
  - Diverticulitis intestinal perforated [Unknown]
  - Off label use [Unknown]
